FAERS Safety Report 6068968-8 (Version None)
Quarter: 2009Q1

REPORT INFORMATION
  Report Type: 
  Country: None (occurrence: None)
  Receive Date: 20090206
  Receipt Date: 20090126
  Transmission Date: 20090719
  Serious: Yes (Other)
  Sender: FDA-Public Use
  Company Number: IT-WATSON-2009-00417

PATIENT
  Age: 67 Year
  Sex: Male

DRUGS (1)
  1. SOTALOL HCL [Suspect]
     Indication: ATRIAL FLUTTER
     Dosage: 40 MG, TID
     Route: 048

REACTIONS (1)
  - BRUGADA SYNDROME [None]
